FAERS Safety Report 9120484 (Version 3)
Quarter: 2013Q1

REPORT INFORMATION
  Report Type: Spontaneous
  Country: JP (occurrence: JP)
  Receive Date: 20130226
  Receipt Date: 20130319
  Transmission Date: 20140127
  Serious: Yes (Other)
  Sender: FDA-Public Use
  Company Number: JP-ROCHE-1194250

PATIENT
  Age: 2 Year
  Sex: Male
  Weight: 10 kg

DRUGS (4)
  1. TAMIFLU [Suspect]
     Indication: INFLUENZA
     Route: 048
     Dates: start: 20130218, end: 20130218
  2. MUCODYNE [Concomitant]
     Indication: INFLUENZA
     Route: 048
     Dates: start: 20130216
  3. POLARAMINE [Concomitant]
     Indication: INFLUENZA
     Route: 048
     Dates: start: 20130216
  4. ASVERIN (TIPEPIDINE HIBENZATE) [Concomitant]
     Indication: INFLUENZA
     Route: 048
     Dates: start: 20130216

REACTIONS (1)
  - Abnormal behaviour [Recovering/Resolving]
